FAERS Safety Report 5339392-8 (Version None)
Quarter: 2007Q2

REPORT INFORMATION
  Report Type: 
  Country: None (occurrence: None)
  Receive Date: 20070525
  Receipt Date: 20070514
  Transmission Date: 20071010
  Serious: Yes (Death)
  Sender: FDA-Public Use
  Company Number: 2007AL001986

PATIENT
  Age: 79 Year
  Sex: Female

DRUGS (15)
  1. TRAMADOL HCL [Suspect]
     Indication: BACK PAIN
     Dosage: 50 MG; UNK; PO
     Route: 048
     Dates: start: 20040722, end: 20040725
  2. MORPHINE [Concomitant]
  3. LEVOTHYROXINE SODIUM [Concomitant]
  4. BACLOFEN [Concomitant]
  5. CO-DYDRAMOL [Concomitant]
  6. CELECOXIB [Concomitant]
  7. ASPIRIN [Concomitant]
  8. CO-PROXAMOL [Concomitant]
  9. TEMAZEPAM [Concomitant]
  10. SIMVASTATIN [Concomitant]
  11. TENORETIC 100 [Concomitant]
  12. ISPAGHULA HUSK [Concomitant]
  13. ROFECOXIB [Concomitant]
  14. FYBOGEL [Concomitant]
  15. AMITRIPTYLINE HCL [Concomitant]

REACTIONS (21)
  - ADVERSE DRUG REACTION [None]
  - ARTERIOSCLEROSIS CORONARY ARTERY [None]
  - BONE NEOPLASM MALIGNANT [None]
  - BRADYCARDIA [None]
  - COMA [None]
  - CONFUSIONAL STATE [None]
  - CONVULSION [None]
  - DRUG INTERACTION [None]
  - FEELING ABNORMAL [None]
  - GAMMA-GLUTAMYLTRANSFERASE INCREASED [None]
  - HALLUCINATION [None]
  - HYPOXIA [None]
  - LOSS OF CONSCIOUSNESS [None]
  - METABOLIC ACIDOSIS [None]
  - MYOCARDIAL INFARCTION [None]
  - PNEUMONIA ASPIRATION [None]
  - RESPIRATORY FAILURE [None]
  - SEPSIS [None]
  - SEROTONIN SYNDROME [None]
  - SHOCK [None]
  - SPLEEN DISORDER [None]
